FAERS Safety Report 7559603-8 (Version None)
Quarter: 2011Q2

REPORT INFORMATION
  Report Type: 
  Country: None (occurrence: None)
  Receive Date: 20110617
  Receipt Date: 20110617
  Transmission Date: 20111010
  Serious: No
  Sender: FDA-Public Use
  Company Number: None

PATIENT
  Sex: Male
  Weight: 75 kg

DRUGS (1)
  1. AVASTIN [Suspect]
     Indication: GLIOBLASTOMA MULTIFORME
     Dosage: 10MG/KG 750MG Q2 WEEKS IV DRIP
     Route: 041
     Dates: start: 20100301, end: 20110616

REACTIONS (3)
  - GLOSSITIS [None]
  - DISEASE PROGRESSION [None]
  - TONGUE DISORDER [None]
